FAERS Safety Report 7099717-2 (Version None)
Quarter: 2010Q4

REPORT INFORMATION
  Report Type: 
  Country: None (occurrence: None)
  Receive Date: 20101112
  Receipt Date: 20090113
  Transmission Date: 20110411
  Serious: No
  Sender: FDA-Public Use
  Company Number: US-KINGPHARMUSA00001-K200900025

PATIENT
  Sex: Female
  Weight: 79.365 kg

DRUGS (11)
  1. AVINZA [Suspect]
     Indication: PAIN
     Dosage: 60 MG, QD
     Route: 048
     Dates: start: 20081001
  2. NAPROXEN SODIUM [Concomitant]
     Dosage: 800 MG, BID
     Route: 048
  3. LORTAB [Concomitant]
     Indication: BREAKTHROUGH PAIN
     Dosage: 7.5 MG, PRN
     Route: 048
  4. DITROPAN [Concomitant]
     Dosage: 10 MG, BID
     Route: 048
     Dates: start: 20030101
  5. SLOW-FE                            /00023503/ [Concomitant]
     Indication: HAEMATOCRIT DECREASED
     Dosage: UNK
     Route: 048
  6. LAMICTAL [Concomitant]
     Dosage: 200 MG, QHS
     Route: 048
  7. DESYREL [Concomitant]
     Dosage: UNK
     Route: 048
  8. CITALOPRAM HYDROBROMIDE [Concomitant]
     Dosage: 80 MG, QD
     Route: 048
  9. INDERAL                            /00030001/ [Concomitant]
     Dosage: UNK
  10. KLONOPIN [Concomitant]
     Dosage: 0.5 MG, UNK
     Route: 048
  11. BUSPAR [Concomitant]
     Dosage: 15 MG, UNK
     Route: 048

REACTIONS (6)
  - ABDOMINAL PAIN UPPER [None]
  - DYSPEPSIA [None]
  - HEADACHE [None]
  - MIGRAINE [None]
  - PRURITUS [None]
  - URTICARIA [None]
